FAERS Safety Report 15707787 (Version 1)
Quarter: 2018Q4

REPORT INFORMATION
  Report Type: Report from Study
  Country: None (occurrence: CA)
  Receive Date: 20181211
  Receipt Date: 20181211
  Transmission Date: 20190205
  Serious: Yes (Hospitalization)
  Sender: FDA-Public Use
  Company Number: CA-ABBVIE-18K-028-2584416-00

PATIENT
  Age: 53 Year
  Sex: Male

DRUGS (2)
  1. HUMIRA [Suspect]
     Active Substance: ADALIMUMAB
     Indication: CROHN^S DISEASE
     Route: 058
     Dates: start: 20180910, end: 20180910
  2. HUMIRA [Suspect]
     Active Substance: ADALIMUMAB
     Dosage: 3 INJECTION
     Route: 058
     Dates: start: 20181023, end: 2018

REACTIONS (3)
  - Intestinal perforation [Unknown]
  - Abdominal pain [Unknown]
  - Gastrointestinal infection [Unknown]

NARRATIVE: CASE EVENT DATE: 201809
